FAERS Safety Report 9307721 (Version 2)
Quarter: 2013Q3

REPORT INFORMATION
  Report Type: Spontaneous
  Country: TR (occurrence: TR)
  Receive Date: 20130524
  Receipt Date: 20130725
  Transmission Date: 20140515
  Serious: Yes (Death)
  Sender: FDA-Public Use
  Company Number: TR-MPIJNJ-2013-01505

PATIENT
  Sex: 0

DRUGS (8)
  1. VELCADE [Suspect]
     Indication: PLASMA CELL MYELOMA
     Route: 065
  2. DEXAMETHASONE [Concomitant]
     Indication: PLASMA CELL MYELOMA
  3. REVLIMID [Concomitant]
     Indication: PLASMA CELL MYELOMA
  4. ENDOXAN                            /00021101/ [Concomitant]
     Indication: PLASMA CELL MYELOMA
     Dosage: UNK
  5. ETOPOSIDE [Concomitant]
  6. CISPLATIN [Concomitant]
  7. BENDAMUSTINE [Concomitant]
  8. THALIDOMIDE [Concomitant]

REACTIONS (3)
  - Disease progression [Fatal]
  - Respiratory disorder [Fatal]
  - Fracture [Fatal]
